FAERS Safety Report 8615983-3 (Version None)
Quarter: 2012Q3

REPORT INFORMATION
  Report Type: 
  Country: None (occurrence: None)
  Receive Date: 20120823
  Receipt Date: 20120816
  Transmission Date: 20120928
  Serious: Yes (Other)
  Sender: FDA-Public Use
  Company Number: CA-ROCHE-1103896

PATIENT
  Sex: Female

DRUGS (8)
  1. SYNTHROID [Concomitant]
  2. ACETAMINOPHEN [Concomitant]
     Indication: PREMEDICATION
     Route: 048
     Dates: start: 20120802, end: 20120802
  3. MABTHERA [Suspect]
     Indication: RHEUMATOID ARTHRITIS
     Route: 042
     Dates: start: 20100101
  4. PREDNISONE TAB [Concomitant]
  5. CELEBREX [Concomitant]
  6. DIPHENHYDRAMINE HCL [Concomitant]
     Indication: PREMEDICATION
     Route: 048
     Dates: start: 20120802, end: 20120802
  7. RANITIDINE [Concomitant]
  8. METHYLPREDNISOLONE [Concomitant]
     Indication: PREMEDICATION
     Route: 042
     Dates: start: 20120802, end: 20120802

REACTIONS (2)
  - OVARIAN CANCER [None]
  - PELVIC NEOPLASM [None]
